FAERS Safety Report 7724194-5 (Version None)
Quarter: 2011Q3

REPORT INFORMATION
  Report Type: 
  Country: None (occurrence: None)
  Receive Date: 20110901
  Receipt Date: 20110826
  Transmission Date: 20111222
  Serious: Yes (Other)
  Sender: FDA-Public Use
  Company Number: CHPA2011GB07796

PATIENT
  Age: 45 Year
  Sex: Female

DRUGS (3)
  1. LAMISIL [Suspect]
     Dosage: UNK, UNK
     Route: 003
     Dates: start: 20110529
  2. AZATHIOPRINE [Concomitant]
     Dosage: UNK, UNK
     Route: 065
  3. TACROLIMUS [Concomitant]
     Dosage: UNK, UNK
     Route: 065

REACTIONS (2)
  - BLISTER [None]
  - DERMATITIS [None]
